FAERS Safety Report 18886443 (Version 1)
Quarter: 2021Q1

REPORT INFORMATION
  Report Type: Spontaneous
  Country: US (occurrence: US)
  Receive Date: 20210212
  Receipt Date: 20210212
  Transmission Date: 20210420
  Serious: Yes (Other)
  Sender: FDA-Public Use
  Company Number: US-SA-2021SA035988

PATIENT
  Age: 67 Year
  Sex: Female

DRUGS (3)
  1. HYDROCODONE [Interacting]
     Active Substance: HYDROCODONE
  2. XELJANZ [Suspect]
     Active Substance: TOFACITINIB CITRATE
     Dosage: UNK
     Dates: start: 202011
  3. RIFADIN [Suspect]
     Active Substance: RIFAMPIN

REACTIONS (6)
  - Skin hypertrophy [Unknown]
  - COVID-19 [Unknown]
  - Nail avulsion [Unknown]
  - Drug interaction [Unknown]
  - Mycobacterium avium complex infection [Unknown]
  - Restless legs syndrome [Unknown]

NARRATIVE: CASE EVENT DATE: 202006
